FAERS Safety Report 7992073-4 (Version None)
Quarter: 2011Q4

REPORT INFORMATION
  Report Type: 
  Country: None (occurrence: None)
  Receive Date: 20111219
  Receipt Date: 20110519
  Transmission Date: 20120403
  Serious: No
  Sender: FDA-Public Use
  Company Number: US-ASTRAZENECA-2011SE30769

PATIENT
  Age: 66 Year
  Sex: Male

DRUGS (3)
  1. XANAX [Concomitant]
  2. CRESTOR [Suspect]
     Indication: HYPERCHOLESTEROLAEMIA
     Route: 048
     Dates: start: 20100101
  3. PROTONIX [Concomitant]

REACTIONS (1)
  - PAIN IN JAW [None]
